FAERS Safety Report 19913480 (Version 1)
Quarter: 2021Q4

REPORT INFORMATION
  Report Type: Spontaneous
  Country: ES (occurrence: ES)
  Receive Date: 20211004
  Receipt Date: 20211004
  Transmission Date: 20220303
  Serious: Yes (Hospitalization)
  Sender: FDA-Public Use
  Company Number: None

PATIENT
  Age: 64 Year
  Sex: Female

DRUGS (4)
  1. SPIRONOLACTONE [Suspect]
     Active Substance: SPIRONOLACTONE
     Dosage: 25 MG, 1X/DAY
     Route: 048
     Dates: start: 20210420, end: 20210701
  2. FUROSEMIDE [Suspect]
     Active Substance: FUROSEMIDE
     Dosage: 40 MG, 1X/DAY
     Route: 048
     Dates: start: 20210420, end: 20210707
  3. ENALAPRIL MALEATE [Suspect]
     Active Substance: ENALAPRIL MALEATE
     Dosage: 5 MG, EVERY 12 HOURS
     Route: 048
     Dates: start: 20210420, end: 20210701
  4. ATORVASTATIN\EZETIMIBE [Suspect]
     Active Substance: ATORVASTATIN\EZETIMIBE
     Indication: Hyperlipidaemia
     Dosage: 1 DF, 1X/DAY
     Route: 048
     Dates: start: 20210420, end: 20210701

REACTIONS (3)
  - Acute kidney injury [Recovered/Resolved]
  - Rhabdomyolysis [Recovering/Resolving]
  - Hepatic cytolysis [Recovering/Resolving]

NARRATIVE: CASE EVENT DATE: 20210701
